FAERS Safety Report 7425274-4 (Version None)
Quarter: 2011Q2

REPORT INFORMATION
  Report Type: 
  Country: None (occurrence: None)
  Receive Date: 20110420
  Receipt Date: 20100921
  Transmission Date: 20111010
  Serious: Yes (Hospitalization, Other)
  Sender: FDA-Public Use
  Company Number: US-BAYER-201022363NA

PATIENT
  Age: 26 Year
  Sex: Female
  Weight: 86.168 kg

DRUGS (18)
  1. PENTASA [Concomitant]
  2. PREMARIN [Concomitant]
  3. HYDROCODONE BITARTRATE AND ACETAMINOPHEN [Concomitant]
  4. CARISOPRODOL [Concomitant]
  5. MAXALT [Concomitant]
  6. PREDNISONE [Concomitant]
  7. PROMETHAZINE [Concomitant]
     Indication: NAUSEA
  8. DOXYCYCLINE [Concomitant]
  9. PROMETHAZINE [Concomitant]
     Indication: CROHN'S DISEASE
     Dosage: UNK
     Dates: start: 20050101, end: 20100101
  10. TOPAMAX [Concomitant]
  11. FLUCONAZOLE [Concomitant]
  12. PROMETHAZINE [Concomitant]
     Indication: VOMITING
  13. MIDRIN [Concomitant]
  14. CHANTIX [Concomitant]
  15. YAZ [Suspect]
     Indication: CONTRACEPTION
     Dosage: UNK UNK, UNK
     Route: 048
     Dates: start: 20080601, end: 20090601
  16. HUMIRA [Concomitant]
     Indication: CROHN'S DISEASE
  17. TOBRADEX [Concomitant]
  18. LORAZEPAM [Concomitant]

REACTIONS (5)
  - MIGRAINE [None]
  - CHOLELITHIASIS [None]
  - ACNE [None]
  - CHOLECYSTITIS [None]
  - ABDOMINAL PAIN UPPER [None]
